FAERS Safety Report 7362374-1 (Version None)
Quarter: 2011Q1

REPORT INFORMATION
  Report Type: 
  Country: None (occurrence: None)
  Receive Date: 20110318
  Receipt Date: 20110314
  Transmission Date: 20110831
  Serious: Yes (Hospitalization)
  Sender: FDA-Public Use
  Company Number: BR-MEDIMMUNE-MEDI-0012148

PATIENT
  Sex: Male
  Weight: 7.84 kg

DRUGS (3)
  1. UNKNOWN VITAMIN [Concomitant]
     Route: 048
  2. SYNAGIS [Suspect]
     Route: 030
     Dates: start: 20100101, end: 20100701
  3. FUROSEMIDE [Concomitant]
     Route: 048

REACTIONS (8)
  - PLATELET COUNT DECREASED [None]
  - PYREXIA [None]
  - PRODUCTIVE COUGH [None]
  - WHEEZING [None]
  - BRONCHITIS [None]
  - ANAEMIA [None]
  - DYSPNOEA [None]
  - IMMUNODEFICIENCY [None]
